FAERS Safety Report 7352581-6 (Version None)
Quarter: 2011Q1

REPORT INFORMATION
  Report Type: 
  Country: None (occurrence: None)
  Receive Date: 20110310
  Receipt Date: 20110310
  Transmission Date: 20110831
  Serious: No
  Sender: FDA-Public Use
  Company Number: None

PATIENT
  Sex: Male

DRUGS (1)
  1. ULTRAVIST 300 [Suspect]

REACTIONS (2)
  - CONTRAST MEDIA REACTION [None]
  - PRURITUS [None]
